FAERS Safety Report 24294253 (Version 1)
Quarter: 2024Q3

REPORT INFORMATION
  Report Type: Spontaneous
  Country: US (occurrence: US)
  Receive Date: 20240906
  Receipt Date: 20240906
  Transmission Date: 20241016
  Serious: No
  Sender: DOMPE FARMACEUTICI
  Company Number: US-FARMAPROD-202406-2269

PATIENT
  Age: 74 Year
  Sex: Female

DRUGS (10)
  1. OXERVATE [Suspect]
     Active Substance: CENEGERMIN-BKBJ
     Indication: Neurotrophic keratopathy
     Route: 047
     Dates: start: 20240612
  2. VALSARTAN [Concomitant]
     Active Substance: VALSARTAN
  3. VALACYCLOVIR [Concomitant]
     Active Substance: VALACYCLOVIR HYDROCHLORIDE
  4. FISH OIL [Concomitant]
     Active Substance: FISH OIL
     Dosage: 40-60MG-10
  5. ARAVA [Concomitant]
     Active Substance: LEFLUNOMIDE
  6. GABAPENTIN [Concomitant]
     Active Substance: GABAPENTIN
  7. VEVYE [Concomitant]
     Active Substance: CYCLOSPORINE
  8. VITAMIN D3 [Concomitant]
     Active Substance: CHOLECALCIFEROL
     Dosage: 40-60MG-10
  9. ASPIRIN EC 81 [Concomitant]
     Dosage: 40-60MG-10
  10. HUMIRA [Concomitant]
     Active Substance: ADALIMUMAB
     Dosage: 20MG/0.2ML SYRINGEKIT

REACTIONS (1)
  - Eye pain [Unknown]

NARRATIVE: CASE EVENT DATE: 20240612
